FAERS Safety Report 10017367 (Version 1)
Quarter: 2014Q1

REPORT INFORMATION
  Report Type: Spontaneous
  Country: US (occurrence: None)
  Receive Date: 20140313
  Receipt Date: 20140313
  Transmission Date: 20141002
  Serious: Yes (Other)
  Sender: FDA-Public Use
  Company Number: None

PATIENT
  Age: 32 Year
  Sex: Female
  Weight: 57.61 kg

DRUGS (1)
  1. SOLU MEDROL 1 G [Suspect]
     Indication: EPILEPSY
     Dosage: 1 G WEEKLY INTO A VEIN
     Dates: start: 20130211, end: 20130325

REACTIONS (3)
  - Mental disorder [None]
  - Abnormal behaviour [None]
  - Withdrawal syndrome [None]
